FAERS Safety Report 4361992-2 (Version None)
Quarter: 2004Q2

REPORT INFORMATION
  Report Type: 
  Country: None (occurrence: None)
  Receive Date: 20040521
  Receipt Date: 20040212
  Transmission Date: 20050107
  Serious: No
  Sender: FDA-Public Use
  Company Number: US-GLAXOSMITHKLINE-A0498010A

PATIENT
  Sex: Female

DRUGS (7)
  1. WELLBUTRIN [Suspect]
     Indication: DEPRESSION
  2. AMBIEN [Concomitant]
  3. CELEXA [Concomitant]
  4. ZESTRIL [Concomitant]
  5. DIURETIC [Concomitant]
  6. LIPITOR [Concomitant]
  7. TYLENOL W/ CODEINE [Concomitant]

REACTIONS (1)
  - TINNITUS [None]
